FAERS Safety Report 8339348-7 (Version None)
Quarter: 2012Q2

REPORT INFORMATION
  Report Type: 
  Country: None (occurrence: None)
  Receive Date: 20120507
  Receipt Date: 20120426
  Transmission Date: 20120825
  Serious: Yes (Other)
  Sender: FDA-Public Use
  Company Number: JP-JNJFOC-20120403907

PATIENT
  Age: 49 Year
  Sex: Female

DRUGS (3)
  1. ZITHROMAX [Concomitant]
     Route: 048
     Dates: start: 20120401, end: 20120404
  2. RISPERDAL [Suspect]
     Indication: PRODUCT USED FOR UNKNOWN INDICATION
     Route: 048
  3. RISPERDAL [Suspect]
     Route: 048
     Dates: start: 20120130

REACTIONS (4)
  - PARKINSONISM [None]
  - PNEUMONIA ASPIRATION [None]
  - NASOPHARYNGITIS [None]
  - OVERDOSE [None]
